FAERS Safety Report 5016575-8 (Version None)
Quarter: 2006Q2

REPORT INFORMATION
  Report Type: 
  Country: None (occurrence: None)
  Receive Date: 20060418
  Receipt Date: 20060303
  Transmission Date: 20061013
  Serious: Yes (Other)
  Sender: FDA-Public Use
  Company Number: 25460

PATIENT
  Age: 58 Year
  Sex: Female
  Weight: 65.7716 kg

DRUGS (4)
  1. OCTREOTIDE ACETATE [Suspect]
     Indication: DIARRHOEA
     Dosage: 25 MCG (0.25 ML) X 2 DAILY
     Dates: start: 20060206
  2. LOPRESSOR [Concomitant]
  3. LOTMOTIL [Concomitant]
  4. DONNATAL [Concomitant]

REACTIONS (1)
  - DIARRHOEA [None]
